FAERS Safety Report 8317541-7 (Version None)
Quarter: 2012Q2

REPORT INFORMATION
  Report Type: 
  Country: None (occurrence: None)
  Receive Date: 20120427
  Receipt Date: 20120417
  Transmission Date: 20120825
  Serious: Yes (Other)
  Sender: FDA-Public Use
  Company Number: US-CELGENEUS-163-21880-12041994

PATIENT
  Age: 70 Year
  Sex: Male
  Weight: 68 kg

DRUGS (4)
  1. REVLIMID [Suspect]
     Dosage: 10 MILLIGRAM
     Route: 048
     Dates: end: 20111201
  2. VELCADE [Concomitant]
     Route: 065
     Dates: start: 20110901, end: 20111201
  3. DEXAMETHASONE [Concomitant]
     Route: 065
     Dates: start: 20110901, end: 20111201
  4. REVLIMID [Suspect]
     Indication: MULTIPLE MYELOMA
     Dosage: 15 MILLIGRAM
     Route: 048
     Dates: start: 20110901

REACTIONS (5)
  - CARDIOVASCULAR DISORDER [None]
  - NEUROPATHY PERIPHERAL [None]
  - DIABETES MELLITUS [None]
  - MENTAL DISORDER [None]
  - RENAL IMPAIRMENT [None]
